FAERS Safety Report 10462828 (Version 2)
Quarter: 2014Q4

REPORT INFORMATION
  Report Type: Spontaneous
  Country: ES (occurrence: ES)
  Receive Date: 20140918
  Receipt Date: 20141007
  Transmission Date: 20150528
  Serious: Yes (Other)
  Sender: FDA-Public Use
  Company Number: ES-ELI_LILLY_AND_COMPANY-ES201409005076

PATIENT
  Age: 37 Year
  Sex: Male

DRUGS (2)
  1. OLANZAPINE. [Interacting]
     Active Substance: OLANZAPINE
     Dosage: 30-40 MG, QD
     Route: 048
  2. OLANZAPINE. [Suspect]
     Active Substance: OLANZAPINE
     Indication: PSYCHOTIC DISORDER
     Dosage: 10 MG, QD
     Route: 048

REACTIONS (7)
  - Schizophrenia, paranoid type [Unknown]
  - Drug interaction [Unknown]
  - Eating disorder [Unknown]
  - Intentional product misuse [Unknown]
  - Somnolence [Unknown]
  - Intentional overdose [Unknown]
  - Acute psychosis [Unknown]
